FAERS Safety Report 10265937 (Version 1)
Quarter: 2014Q2

REPORT INFORMATION
  Report Type: Spontaneous
  Country: BR (occurrence: BR)
  Receive Date: 20140627
  Receipt Date: 20140627
  Transmission Date: 20141212
  Serious: Yes (Other)
  Sender: FDA-Public Use
  Company Number: BR-PFIZER INC-2014174661

PATIENT
  Age: 73 Year
  Sex: Female
  Weight: 75 kg

DRUGS (9)
  1. LIPITOR [Suspect]
     Indication: BLOOD CHOLESTEROL INCREASED
     Dosage: 40 MG
     Route: 048
     Dates: start: 2013
  2. LIPITOR [Suspect]
     Dosage: 80 MG, DAILY
     Route: 048
     Dates: start: 201405, end: 20140620
  3. LIPITOR [Suspect]
     Dosage: 40 MG
     Route: 048
     Dates: start: 201406
  4. ALLOPURINOL [Concomitant]
     Indication: BLOOD URIC ACID
     Dosage: UNK
     Dates: start: 2009
  5. LEXOTAN [Concomitant]
     Indication: RELAXATION THERAPY
     Dosage: UNK
     Dates: start: 1994
  6. METHYLDOPA [Concomitant]
     Indication: HYPERTENSION
     Dosage: UNK
     Dates: start: 2010
  7. ALDOMET [Concomitant]
     Indication: BLOOD PRESSURE ABNORMAL
     Dosage: 2 TABLETS, DAILY
     Dates: start: 2011
  8. ATENOLOL [Concomitant]
     Indication: BLOOD PRESSURE ABNORMAL
     Dosage: 2 TABLETS, DAILY
     Dates: start: 2012
  9. SUSTRATE [Concomitant]
     Indication: CARDIAC DISORDER
     Dosage: 3 TABLETS, DAILY
     Dates: start: 201212

REACTIONS (7)
  - Venous occlusion [Unknown]
  - Headache [Unknown]
  - Eye pain [Unknown]
  - Lacrimation increased [Unknown]
  - Insomnia [Unknown]
  - Malaise [Unknown]
  - Drug ineffective [Unknown]
